FAERS Safety Report 13388415 (Version 1)
Quarter: 2017Q1

REPORT INFORMATION
  Report Type: Spontaneous
  Country: GB (occurrence: GB)
  Receive Date: 20170330
  Receipt Date: 20170330
  Transmission Date: 20170429
  Serious: Yes (Other)
  Sender: FDA-Public Use
  Company Number: GB-MYLANLABS-2017M1019544

PATIENT

DRUGS (9)
  1. MONTELUKAST [Suspect]
     Active Substance: MONTELUKAST SODIUM
     Dates: start: 20170313
  2. RAMIPRIL. [Concomitant]
     Active Substance: RAMIPRIL
     Dosage: REQUIRES ANNUAL CREATININE AND ELECTROLYTES BLOOD TEST.
     Dates: start: 20150413, end: 20170313
  3. SALMETEROL [Concomitant]
     Active Substance: SALMETEROL
     Route: 055
     Dates: start: 20161220, end: 20161221
  4. PULMICORT TURBUHALER [Concomitant]
     Active Substance: BUDESONIDE
     Route: 055
     Dates: start: 20140520
  5. FOSTAIR [Concomitant]
     Active Substance: BECLOMETHASONE\FORMOTEROL
     Dates: start: 20170110
  6. FERROUS FUMARATE [Concomitant]
     Active Substance: FERROUS FUMARATE
     Dates: start: 20161220, end: 20170117
  7. AMLODIPINE [Concomitant]
     Active Substance: AMLODIPINE BESYLATE
     Dates: start: 20160516
  8. PIROXICAM. [Concomitant]
     Active Substance: PIROXICAM
     Dates: start: 20170110, end: 20170111
  9. SALBUTAMOL [Concomitant]
     Active Substance: ALBUTEROL
     Route: 055
     Dates: start: 20140520

REACTIONS (2)
  - Dizziness [Recovering/Resolving]
  - Hypotension [Recovering/Resolving]

NARRATIVE: CASE EVENT DATE: 20170313
